FAERS Safety Report 15148138 (Version 1)
Quarter: 2018Q3

REPORT INFORMATION
  Report Type: Spontaneous
  Country: US (occurrence: US)
  Receive Date: 20180619
  Receipt Date: 20180619
  Transmission Date: 20181010
  Serious: Yes (Other)
  Sender: FDA-Public Use
  Company Number: None

PATIENT
  Sex: Female

DRUGS (1)
  1. STIVARGA [Suspect]
     Active Substance: REGORAFENIB
     Indication: RECTOSIGMOID CANCER
     Dosage: 80MG ONCE DAILY X 21 DAYS ON, 7 DAYS OFF ORAL
     Route: 048
     Dates: start: 20180130, end: 20180207

REACTIONS (7)
  - Vomiting [None]
  - Headache [None]
  - Nausea [None]
  - Oedema peripheral [None]
  - Constipation [None]
  - Dyspnoea [None]
  - Haematuria [None]
